FAERS Safety Report 5842983-9 (Version None)
Quarter: 2008Q3

REPORT INFORMATION
  Report Type: 
  Country: None (occurrence: None)
  Receive Date: 20080808
  Receipt Date: 20080724
  Transmission Date: 20090109
  Serious: Yes (Hospitalization)
  Sender: FDA-Public Use
  Company Number: 2008SP013179

PATIENT
  Age: 36 Year
  Sex: Female

DRUGS (2)
  1. REBETOL [Suspect]
     Indication: HEPATITIS C
     Dates: start: 20061124, end: 20080423
  2. PEGASYS [Suspect]
     Indication: HEPATITIS C
     Dates: start: 20061124, end: 20080423

REACTIONS (4)
  - GASTROINTESTINAL HAEMORRHAGE [None]
  - HAEMOLYTIC ANAEMIA [None]
  - OESOPHAGEAL CANDIDIASIS [None]
  - PORTAL HYPERTENSIVE GASTROPATHY [None]
